FAERS Safety Report 21176337 (Version 2)
Quarter: 2022Q4

REPORT INFORMATION
  Report Type: Spontaneous
  Country: BR (occurrence: BR)
  Receive Date: 20220805
  Receipt Date: 20221207
  Transmission Date: 20230112
  Serious: Yes (Other)
  Sender: FDA-Public Use
  Company Number: BR-CELLTRION INC.-2022BR012220

PATIENT

DRUGS (3)
  1. INFLIXIMAB [Suspect]
     Active Substance: INFLIXIMAB
     Indication: Ankylosing spondylitis
     Dosage: 3 APOULES EVERY 8 WEEKS
     Route: 042
  2. ALENDRONATE [Concomitant]
     Active Substance: ALENDRONATE SODIUM
     Indication: Osteopenia
     Dosage: ONCE IN A WEEK, 9 YEARS AGO
     Route: 048
  3. VITAMIN D NOS [Concomitant]
     Active Substance: VITAMIN D NOS
     Dosage: EVERY 15 DAYS, 1 MONTH AGO
     Route: 048

REACTIONS (5)
  - COVID-19 [Unknown]
  - Pain [Unknown]
  - Intentional dose omission [Unknown]
  - Underdose [Unknown]
  - Off label use [Unknown]
